FAERS Safety Report 19220483 (Version 1)
Quarter: 2021Q2

REPORT INFORMATION
  Report Type: Spontaneous
  Country: US (occurrence: US)
  Receive Date: 20210506
  Receipt Date: 20210506
  Transmission Date: 20210717
  Serious: Yes (Hospitalization, Other)
  Sender: FDA-Public Use
  Company Number: US-ORGANON-O2105USA000011

PATIENT
  Age: 87 Year
  Sex: Male
  Weight: 73.02 kg

DRUGS (6)
  1. PYRIMETHAMINE [Suspect]
     Active Substance: PYRIMETHAMINE
     Indication: CEREBRAL TOXOPLASMOSIS
     Dosage: 75 MILLIGRAM, QD
  2. KEPPRA [Suspect]
     Active Substance: LEVETIRACETAM
     Dosage: 500 MILLIGRAM, BID (1 TABLET TWICE DAILY)
     Route: 048
  3. LATANOPROST. [Suspect]
     Active Substance: LATANOPROST
     Dosage: 1 DROP, IN BOTH EYES AT BEDTIME
     Route: 047
  4. SULFADIAZINE. [Suspect]
     Active Substance: SULFADIAZINE
     Dosage: 500 MILLIGRAM, TID (3 TABLETS)
     Route: 048
  5. BRIMONIDINE [Suspect]
     Active Substance: BRIMONIDINE TARTRATE
     Dosage: 1 DROP, EVERY 8 HOURS
  6. ZOCOR [Suspect]
     Active Substance: SIMVASTATIN
     Dosage: 10 MILLIGRAM, QD
     Route: 048

REACTIONS (1)
  - Renal failure [Unknown]

NARRATIVE: CASE EVENT DATE: 20210416
